FAERS Safety Report 23398062 (Version 1)
Quarter: 2024Q1

REPORT INFORMATION
  Report Type: Spontaneous
  Country: US (occurrence: None)
  Receive Date: 20240112
  Receipt Date: 20240112
  Transmission Date: 20240409
  Serious: Yes (Other)
  Sender: FDA-Public Use
  Company Number: None

PATIENT
  Age: 36 Year
  Sex: Female
  Weight: 41.85 kg

DRUGS (1)
  1. BUPRENORPHINE\NALOXONE [Suspect]
     Active Substance: BUPRENORPHINE\NALOXONE
     Indication: Drug therapy
     Dosage: 1 FILM TWICE A DAY SUBLINGUAL
     Route: 060
     Dates: start: 20220124

REACTIONS (1)
  - Dental caries [None]

NARRATIVE: CASE EVENT DATE: 20220124
